FAERS Safety Report 6940288-6 (Version None)
Quarter: 2010Q3

REPORT INFORMATION
  Report Type: 
  Country: None (occurrence: None)
  Receive Date: 20100825
  Receipt Date: 20100820
  Transmission Date: 20110219
  Serious: Yes (Life-Threatening, Hospitalization, Other)
  Sender: FDA-Public Use
  Company Number: PHHY2010JP02340

PATIENT
  Sex: Female
  Weight: 41 kg

DRUGS (18)
  1. TEGRETOL [Suspect]
     Indication: EPILEPSY
     Dosage: 400 MG, BID
     Route: 048
     Dates: start: 20100105, end: 20100107
  2. PHENYTOIN SODIUM [Suspect]
     Indication: EPILEPSY
     Dosage: 3 G, DAILY
     Route: 048
     Dates: start: 20091225, end: 20100107
  3. PHENYTOIN SODIUM [Suspect]
     Dosage: 250 MG, QD
     Dates: start: 20100104, end: 20100105
  4. PHENYTOIN SODIUM [Suspect]
     Dosage: 3 G, DAILY
     Route: 048
     Dates: start: 20100109, end: 20100114
  5. PHENYTOIN SODIUM [Suspect]
     Dosage: 150 MG, BID
     Route: 048
     Dates: start: 20100115, end: 20100118
  6. GASTER [Suspect]
     Dosage: 20 MG, DAILY
     Route: 048
     Dates: start: 20091225, end: 20100113
  7. RADICUT [Suspect]
     Dosage: 60 MG, DAILY
     Dates: start: 20091225, end: 20100115
  8. LENDORMIN D [Concomitant]
     Dosage: 0.25 MG, UNK
     Route: 048
     Dates: start: 20100105
  9. ALINAMIN F [Concomitant]
     Dosage: 75 MG, UNK
     Route: 048
     Dates: start: 20091226
  10. NEUQUINON [Concomitant]
     Dosage: 30 MG, UNK
     Route: 048
     Dates: start: 20091226
  11. JUVELA [Concomitant]
     Dosage: 150 MG, UNK
     Route: 048
     Dates: start: 20091226
  12. GLYCEOL [Concomitant]
     Dosage: 400 ML, UNK
     Dates: start: 20091225, end: 20100202
  13. PENTCILLIN [Concomitant]
     Indication: PYREXIA
     Dosage: 04 G, UNK
     Dates: start: 20100106, end: 20100112
  14. DIPRIVAN [Concomitant]
     Indication: EPILEPSY
     Dosage: 60 ML, UNK
     Dates: start: 20100106, end: 20100114
  15. DECADRON [Concomitant]
     Indication: MITOCHONDRIAL ENCEPHALOMYOPATHY
     Dosage: 08 MG, UNK
     Dates: start: 20091228
  16. DECADRON [Concomitant]
     Dosage: 04 MG, UNK
  17. DECADRON [Concomitant]
     Dosage: 02 MG, UNK
  18. LOXONIN [Concomitant]
     Route: 048

REACTIONS (11)
  - AGRANULOCYTOSIS [None]
  - ANAEMIA [None]
  - FEBRILE NEUTROPENIA [None]
  - HAEMOGLOBIN DECREASED [None]
  - HEMIANOPIA HOMONYMOUS [None]
  - LACTIC ACIDOSIS [None]
  - PANCYTOPENIA [None]
  - PLATELET COUNT DECREASED [None]
  - PYREXIA [None]
  - URINE ABNORMALITY [None]
  - WHITE BLOOD CELL COUNT DECREASED [None]
